FAERS Safety Report 14194549 (Version 1)
Quarter: 2017Q4

REPORT INFORMATION
  Report Type: Spontaneous
  Country: US (occurrence: US)
  Receive Date: 20171115
  Receipt Date: 20171115
  Transmission Date: 20180321
  Serious: Yes (Hospitalization, Disabling, Other)
  Sender: FDA-Public Use
  Company Number: None

PATIENT
  Age: 20 Year
  Sex: Female
  Weight: 49.5 kg

DRUGS (2)
  1. NUVARING [Suspect]
     Active Substance: ETHINYL ESTRADIOL\ETONOGESTREL
     Indication: CONTRACEPTION
     Dosage: ?          QUANTITY:1 RING;OTHER FREQUENCY:ONCE A MONTH;?
     Route: 067
     Dates: start: 20170919, end: 20171021
  2. NAPROXEN. [Concomitant]
     Active Substance: NAPROXEN

REACTIONS (7)
  - Facial paralysis [None]
  - Nerve injury [None]
  - Hemiparesis [None]
  - Blood pressure increased [None]
  - Tremor [None]
  - Stress [None]
  - Amnesia [None]

NARRATIVE: CASE EVENT DATE: 20170920
